FAERS Safety Report 23851305 (Version 2)
Quarter: 2025Q1

REPORT INFORMATION
  Report Type: Report from Study
  Country: US (occurrence: US)
  Receive Date: 20240514
  Receipt Date: 20250227
  Transmission Date: 20250408
  Serious: Yes (Other)
  Sender: ACADIA PHARMACEUTICALS
  Company Number: US-ACADIA PHARMACEUTICALS INC.-ACA-2024-PIM-002026

PATIENT
  Sex: Male

DRUGS (12)
  1. NUPLAZID [Suspect]
     Active Substance: PIMAVANSERIN TARTRATE
     Indication: Parkinson^s disease
     Dosage: 34 MILLIGRAM, QD
     Route: 048
     Dates: start: 20240314
  2. NUPLAZID [Suspect]
     Active Substance: PIMAVANSERIN TARTRATE
     Indication: Hallucination
  3. COMTAN [Concomitant]
     Active Substance: ENTACAPONE
  4. ASPIRIN [Concomitant]
     Active Substance: ASPIRIN
  5. BISACODYL [Concomitant]
     Active Substance: BISACODYL
  6. DOCUSATE SODIUM [Concomitant]
     Active Substance: DOCUSATE SODIUM
  7. LOSARTAN [Concomitant]
     Active Substance: LOSARTAN
  8. METFORMIN [Concomitant]
     Active Substance: METFORMIN HYDROCHLORIDE
  9. PRAMIPEXOLE [Concomitant]
     Active Substance: PRAMIPEXOLE
  10. PRAVASTATIN [Concomitant]
     Active Substance: PRAVASTATIN
  11. SINEMET CR [Concomitant]
     Active Substance: CARBIDOPA\LEVODOPA
  12. NOURIANZ [Concomitant]
     Active Substance: ISTRADEFYLLINE

REACTIONS (1)
  - Hallucination [Not Recovered/Not Resolved]
